FAERS Safety Report 7999551-2 (Version None)
Quarter: 2011Q4

REPORT INFORMATION
  Report Type: 
  Country: None (occurrence: None)
  Receive Date: 20111221
  Receipt Date: 20111206
  Transmission Date: 20120403
  Serious: Yes (Hospitalization)
  Sender: FDA-Public Use
  Company Number: BE-ROCHE-1017830

PATIENT
  Age: 47 Year
  Sex: Male
  Weight: 82 kg

DRUGS (5)
  1. VITAMIN C [Concomitant]
     Dates: start: 20111019
  2. LORAMET [Concomitant]
     Dates: start: 20111114
  3. DEANXIT [Concomitant]
     Dosage: 1 CAPSULE
     Dates: start: 20110824
  4. FOLIC ACID [Concomitant]
     Dates: start: 20110824
  5. VEMURAFENIB [Suspect]
     Indication: METASTATIC MALIGNANT MELANOMA
     Route: 048
     Dates: start: 20110824

REACTIONS (1)
  - CEREBRAL HAEMORRHAGE [None]
